FAERS Safety Report 7596142-2 (Version None)
Quarter: 2011Q3

REPORT INFORMATION
  Report Type: 
  Country: None (occurrence: None)
  Receive Date: 20110707
  Receipt Date: 20110630
  Transmission Date: 20111222
  Serious: Yes (Other)
  Sender: FDA-Public Use
  Company Number: IT-PFIZER INC-2011147796

PATIENT
  Age: 88 Year
  Sex: Female

DRUGS (3)
  1. CEFOPERAZONE SODIUM [Suspect]
     Indication: URINARY TRACT INFECTION
  2. CEFOPERAZONE SODIUM [Suspect]
     Indication: PSEUDOMONAS INFECTION
     Dosage: 2 G, 3X/DAY
  3. LORAZEPAM [Concomitant]
     Indication: INSOMNIA
     Dosage: 1 MG/DAY

REACTIONS (1)
  - ENCEPHALOPATHY [None]
